FAERS Safety Report 9173462 (Version 1)
Quarter: 2013Q1

REPORT INFORMATION
  Report Type: Spontaneous
  Country: US (occurrence: None)
  Receive Date: 20130318
  Receipt Date: 20130318
  Transmission Date: 20140127
  Serious: Yes (Hospitalization)
  Sender: FDA-Public Use
  Company Number: AXC-2013-000090

PATIENT
  Age: 40 Year
  Sex: Female

DRUGS (1)
  1. MESALAMINE [Suspect]
     Indication: CROHN^S DISEASE

REACTIONS (2)
  - Crohn^s disease [None]
  - Hepatitis B [None]
